FAERS Safety Report 4866912-X (Version None)
Quarter: 2005Q4

REPORT INFORMATION
  Report Type: 
  Country: None (occurrence: None)
  Receive Date: 20051222
  Receipt Date: 20051214
  Transmission Date: 20060501
  Serious: Yes (Other)
  Sender: FDA-Public Use
  Company Number: 2005162673

PATIENT
  Age: 75 Year
  Sex: Male

DRUGS (11)
  1. VFEND [Suspect]
     Indication: BRONCHOPULMONARY ASPERGILLOSIS
     Dosage: 400 MG (2 IN 1 D), ORAL
     Route: 048
     Dates: start: 20050928, end: 20051024
  2. PERSELIN (ALLYLESTRENOL) [Concomitant]
  3. GASTER (FAMOTIDNE) [Concomitant]
  4. CLARITHROMYCIN [Concomitant]
  5. LOSARTAN POTASSIUM [Concomitant]
  6. ITRACONAZOLE [Concomitant]
  7. CALCIUM LACTATE  (CALCIUM LACTATE) [Concomitant]
  8. ALFAROL (ALFACALCIDOL) [Concomitant]
  9. MINPRESS (PRAZOSIN) [Concomitant]
  10. MARZULENE S (LEVOGLUTAMIDE, SODIUM GUALENATE) [Concomitant]
  11. PREDNISOLONE [Concomitant]

REACTIONS (5)
  - ALANINE AMINOTRANSFERASE INCREASED [None]
  - ASPARTATE AMINOTRANSFERASE INCREASED [None]
  - BLOOD LACTATE DEHYDROGENASE INCREASED [None]
  - LIVER DISORDER [None]
  - NIGHT SWEATS [None]
